FAERS Safety Report 10702982 (Version 2)
Quarter: 2015Q2

REPORT INFORMATION
  Report Type: Report from Study
  Country: HU (occurrence: HU)
  Receive Date: 20150110
  Receipt Date: 20150608
  Transmission Date: 20150821
  Serious: Yes (Hospitalization)
  Sender: FDA-Public Use
  Company Number: HU-ABBVIE-15K-076-1329394-00

PATIENT
  Age: 70 Year
  Sex: Female

DRUGS (8)
  1. CYNT [Concomitant]
     Active Substance: MOXONIDINE
     Indication: PRODUCT USED FOR UNKNOWN INDICATION
  2. TANYDON [Concomitant]
     Indication: HYPERTENSION
     Dates: start: 2011
  3. LUCETAM [Concomitant]
     Indication: DIZZINESS
     Dates: start: 2013
  4. HUMIRA [Suspect]
     Active Substance: ADALIMUMAB
     Indication: RHEUMATOID ARTHRITIS
     Route: 058
     Dates: start: 201409, end: 201412
  5. FRONTIN [Concomitant]
     Active Substance: ALPRAZOLAM
     Indication: PRODUCT USED FOR UNKNOWN INDICATION
     Dates: start: 2012
  6. FUROSEMID [Concomitant]
     Active Substance: FUROSEMIDE
     Indication: PRODUCT USED FOR UNKNOWN INDICATION
     Dates: start: 2010
  7. METYPRED [Concomitant]
     Active Substance: METHYLPREDNISOLONE
     Indication: ASTHMA
     Dates: start: 2011
  8. RETAFYLLIN [Concomitant]
     Indication: ASTHMA
     Dates: start: 2011

REACTIONS (8)
  - Infarction [Unknown]
  - Daydreaming [Unknown]
  - Thyroiditis [Recovering/Resolving]
  - Malaise [Recovered/Resolved]
  - Cardiac fibrillation [Recovered/Resolved]
  - Dizziness [Recovered/Resolved]
  - Stupor [Recovered/Resolved]
  - Hyperthyroidism [Recovering/Resolving]

NARRATIVE: CASE EVENT DATE: 20141205
